FAERS Safety Report 8207974-1 (Version None)
Quarter: 2012Q1

REPORT INFORMATION
  Report Type: 
  Country: None (occurrence: None)
  Receive Date: 20120314
  Receipt Date: 20120301
  Transmission Date: 20120608
  Serious: Yes (Hospitalization, Other)
  Sender: FDA-Public Use
  Company Number: DE-SANOFI-AVENTIS-200812318DE

PATIENT
  Sex: Male
  Weight: 90 kg

DRUGS (11)
  1. VOLTAREN [Concomitant]
     Indication: PAIN
     Route: 048
  2. DOCETAXEL [Suspect]
     Route: 042
     Dates: start: 20080723, end: 20080723
  3. METFORMIN [Concomitant]
     Indication: DIABETES MELLITUS
     Route: 048
  4. GLIMEPIRIDE [Concomitant]
     Indication: DIABETES MELLITUS
     Route: 048
  5. VAGANTIN [Concomitant]
     Route: 048
  6. DOCETAXEL [Suspect]
     Route: 042
     Dates: start: 20081105, end: 20081105
  7. XIPAMIDE [Concomitant]
     Indication: HYPERTENSION
     Route: 048
  8. DOCETAXEL [Suspect]
     Dosage: CYCLE- 1-3SEQUENCE-1
     Route: 042
     Dates: start: 20080521, end: 20080702
  9. PANTOPRAZOLE [Concomitant]
     Indication: PROPHYLAXIS
     Route: 048
  10. DOCETAXEL [Suspect]
     Dosage: CYCLE 1-3SEQUENCE-2
     Route: 042
     Dates: start: 20080820, end: 20081015
  11. COLECALCIFEROL [Concomitant]
     Indication: PROPHYLAXIS
     Dosage: DOSE AS USED: NOT REPORTED
     Route: 048

REACTIONS (8)
  - PULMONARY TOXICITY [None]
  - DYSPNOEA [None]
  - DYSPHAGIA [None]
  - CARDIOTOXICITY [None]
  - HYPERHIDROSIS [None]
  - LARYNGITIS [None]
  - PHARYNGITIS [None]
  - DYSPHONIA [None]
